FAERS Safety Report 7105987-4 (Version None)
Quarter: 2010Q4

REPORT INFORMATION
  Report Type: 
  Country: None (occurrence: None)
  Receive Date: 20101116
  Receipt Date: 20101112
  Transmission Date: 20110411
  Serious: Yes (Hospitalization)
  Sender: FDA-Public Use
  Company Number: US-BRISTOL-MYERS SQUIBB COMPANY-15383292

PATIENT
  Age: 61 Year
  Sex: Male
  Weight: 61 kg

DRUGS (3)
  1. CISPLATIN [Suspect]
     Indication: OESOPHAGEAL CARCINOMA
     Dosage: FORMLN: 25MG/M2 WEEKLYX6WKS,LAST ADMMINS ON 1NOV10
     Route: 042
     Dates: start: 20101004
  2. TAXOL [Suspect]
     Indication: OESOPHAGEAL CARCINOMA
     Dosage: 50 MG/M2 IV WEEKLY X 6 WEEKS,LAST ADMINS ON 1NOV10
     Route: 042
     Dates: start: 20101004
  3. RADIOTHERAPY [Suspect]
     Indication: OESOPHAGEAL CARCINOMA
     Dosage: 1DF =4320 CGY,RADIATION ADMINS:EXTERNAL BEAM NOS,LAST ADMINS ON 4NOV10 NOOFFRAC:24,ELAPSED DAYS:32
     Dates: start: 20101004

REACTIONS (3)
  - BLOOD MAGNESIUM DECREASED [None]
  - NEUTROPHIL COUNT DECREASED [None]
  - SYNCOPE [None]
